FAERS Safety Report 18043271 (Version 3)
Quarter: 2023Q2

REPORT INFORMATION
  Report Type: Spontaneous
  Country: US (occurrence: US)
  Receive Date: 20200720
  Receipt Date: 20230629
  Transmission Date: 20230721
  Serious: Yes (Other)
  Sender: FDA-Public Use
  Company Number: US-JNJFOC-20200726662

PATIENT
  Sex: Male

DRUGS (4)
  1. RISPERDAL M-TAB [Suspect]
     Active Substance: RISPERIDONE
     Indication: Behaviour disorder
     Route: 048
     Dates: start: 2010
  2. RISPERDAL M-TAB [Suspect]
     Active Substance: RISPERIDONE
     Route: 048
     Dates: start: 20101021
  3. RISPERDAL M-TAB [Suspect]
     Active Substance: RISPERIDONE
     Dosage: 01 MG TABLET ONE IN MORNING AND 02 IN EVENING
     Route: 048
     Dates: start: 20110209
  4. RISPERDAL M-TAB [Suspect]
     Active Substance: RISPERIDONE
     Dosage: 02 MG TABLET AT BED TIME AND 01 MG TABLET ONCE A DAY
     Route: 048
     Dates: end: 2016

REACTIONS (3)
  - Obesity [Unknown]
  - Emotional disorder [Unknown]
  - Gynaecomastia [Unknown]
